FAERS Safety Report 11717350 (Version 1)
Quarter: 2015Q4

REPORT INFORMATION
  Report Type: Other
  Country: GB (occurrence: GB)
  Receive Date: 20151110
  Receipt Date: 20151110
  Transmission Date: 20160304
  Serious: Yes (Other)
  Sender: FDA-Public Use
  Company Number: GB-CIPLA LTD.-2015GB08486

PATIENT

DRUGS (4)
  1. CETIRIZINE [Suspect]
     Active Substance: CETIRIZINE HYDROCHLORIDE
     Indication: SEASONAL ALLERGY
     Dosage: 10 MG, QD
     Route: 048
     Dates: start: 20150701, end: 20150909
  2. MOMETASONE [Concomitant]
     Active Substance: MOMETASONE
     Dosage: 146
     Route: 045
  3. SALBUTAMOL [Concomitant]
     Active Substance: ALBUTEROL
     Dosage: AS NECESSARY
     Route: 055
  4. CLENIL MODULITE [Concomitant]
     Active Substance: BECLOMETHASONE DIPROPIONATE
     Dosage: 2 DF, BID, 50
     Route: 055

REACTIONS (4)
  - Ocular discomfort [Unknown]
  - Dizziness [Recovered/Resolved]
  - Tunnel vision [Unknown]
  - Nausea [Unknown]

NARRATIVE: CASE EVENT DATE: 20150702
